FAERS Safety Report 18714252 (Version 1)
Quarter: 2021Q1

REPORT INFORMATION
  Report Type: Spontaneous
  Country: CA (occurrence: CA)
  Receive Date: 20210107
  Receipt Date: 20210107
  Transmission Date: 20210419
  Serious: Yes (Other)
  Sender: FDA-Public Use
  Company Number: CA-SA-2020SA374701

PATIENT

DRUGS (7)
  1. LEFLUNOMIDE. [Suspect]
     Active Substance: LEFLUNOMIDE
     Indication: PRODUCT USED FOR UNKNOWN INDICATION
     Dosage: UNK
     Route: 065
  2. HYDROXYCHLOROQUINE SULFATE. [Concomitant]
     Active Substance: HYDROXYCHLOROQUINE SULFATE
  3. XELJANZ [Concomitant]
     Active Substance: TOFACITINIB CITRATE
  4. FENTANYL. [Concomitant]
     Active Substance: FENTANYL
  5. DESOXIMETASONE. [Concomitant]
     Active Substance: DESOXIMETASONE
  6. PREDNISONE. [Concomitant]
     Active Substance: PREDNISONE
  7. METHOTREXATE. [Suspect]
     Active Substance: METHOTREXATE
     Indication: PRODUCT USED FOR UNKNOWN INDICATION
     Dosage: UNK, QW

REACTIONS (11)
  - Rheumatoid arthritis [Unknown]
  - Weight decreased [Unknown]
  - Pain [Unknown]
  - Diarrhoea [Unknown]
  - Disorientation [Unknown]
  - Therapeutic response decreased [Unknown]
  - Fatigue [Unknown]
  - Poor quality sleep [Unknown]
  - Dizziness [Unknown]
  - Gait disturbance [Unknown]
  - General physical health deterioration [Unknown]
